FAERS Safety Report 5400247-1 (Version None)
Quarter: 2007Q3

REPORT INFORMATION
  Report Type: 
  Country: None (occurrence: None)
  Receive Date: 20070730
  Receipt Date: 20070717
  Transmission Date: 20080115
  Serious: Yes (Hospitalization, Disabling, Other)
  Sender: FDA-Public Use
  Company Number: US-ROCHE-477655

PATIENT
  Age: 33 Year
  Sex: Female

DRUGS (4)
  1. LARIAM [Suspect]
     Indication: MALARIA PROPHYLAXIS
     Dosage: THE PATIENT REPORTED TAKING THREE LARIAM ^PILLS^ IN NOVEMBER 2004 OVER THE COURSE OF THREE WEEKS.
     Route: 065
     Dates: start: 20041101, end: 20041101
  2. TYLENOL (CAPLET) [Concomitant]
  3. IBUPROFEN [Concomitant]
  4. BIRTH CONTROL PILL [Concomitant]
     Dosage: DRUG NAME REPORTED AS: BCP (TYPE UNKNOWN)

REACTIONS (12)
  - AGGRESSION [None]
  - COGNITIVE DISORDER [None]
  - CONVULSION [None]
  - FLIGHT OF IDEAS [None]
  - HALLUCINATION [None]
  - INSOMNIA [None]
  - MEMORY IMPAIRMENT [None]
  - NIGHTMARE [None]
  - PSYCHOTIC DISORDER [None]
  - SUICIDAL IDEATION [None]
  - VESTIBULAR DISORDER [None]
  - VISUAL DISTURBANCE [None]
